FAERS Safety Report 17803334 (Version 2)
Quarter: 2020Q2

REPORT INFORMATION
  Report Type: Spontaneous
  Country: US (occurrence: US)
  Receive Date: 20200519
  Receipt Date: 20200616
  Transmission Date: 20200714
  Serious: No
  Sender: FDA-Public Use
  Company Number: US-PFIZER INC-2020198390

PATIENT
  Age: 45 Year
  Sex: Female

DRUGS (1)
  1. IBRANCE [Suspect]
     Active Substance: PALBOCICLIB
     Dosage: 75 MG
     Dates: start: 20200326

REACTIONS (5)
  - Feeling abnormal [Unknown]
  - White blood cell count decreased [Unknown]
  - Dizziness postural [Unknown]
  - Hot flush [Unknown]
  - Product dose omission [Unknown]
